FAERS Safety Report 4560187-7 (Version None)
Quarter: 2005Q1

REPORT INFORMATION
  Report Type: 
  Country: None (occurrence: None)
  Receive Date: 20050125
  Receipt Date: 20041206
  Transmission Date: 20050727
  Serious: Yes (Other)
  Sender: FDA-Public Use
  Company Number: PHBS2004CA16657

PATIENT
  Age: 64 Year
  Sex: Female

DRUGS (2)
  1. DEFEROXAMINE [Suspect]
     Indication: BLOOD IRON INCREASED
     Dosage: 6 DAYS PER WEEK
  2. DEFEROXAMINE [Suspect]
     Dosage: 3 DAYS FOLLOWED BY 2 DAYS OF NO INTAKE

REACTIONS (10)
  - COLOUR VISION TESTS ABNORMAL [None]
  - DEAFNESS [None]
  - DENTAL CARIES [None]
  - DRY MOUTH [None]
  - KERATOCONJUNCTIVITIS SICCA [None]
  - PUNCTATE KERATITIS [None]
  - RETINAL DEGENERATION [None]
  - RETINAL PIGMENT EPITHELIOPATHY [None]
  - SJOGREN'S SYNDROME [None]
  - VISUAL ACUITY REDUCED [None]
